FAERS Safety Report 13574774 (Version 1)
Quarter: 2017Q2

REPORT INFORMATION
  Report Type: Spontaneous
  Country: US (occurrence: US)
  Receive Date: 20170523
  Receipt Date: 20170523
  Transmission Date: 20170830
  Serious: No
  Sender: FDA-Public Use
  Company Number: US-TAKEDA-2017TUS010950

PATIENT
  Sex: Female
  Weight: 61.22 kg

DRUGS (2)
  1. TRINTELLIX [Suspect]
     Active Substance: VORTIOXETINE HYDROBROMIDE
     Indication: DEPERSONALISATION/DEREALISATION DISORDER
     Dosage: UNK
     Route: 065
     Dates: end: 201701
  2. TRINTELLIX [Suspect]
     Active Substance: VORTIOXETINE HYDROBROMIDE
     Indication: DISSOCIATIVE DISORDER

REACTIONS (2)
  - Off label use [Unknown]
  - No adverse event [Unknown]
